FAERS Safety Report 10412841 (Version 9)
Quarter: 2015Q4

REPORT INFORMATION
  Report Type: Report from Study
  Country: US (occurrence: US)
  Receive Date: 20140827
  Receipt Date: 20151209
  Transmission Date: 20160304
  Serious: Yes (Death, Hospitalization)
  Sender: FDA-Public Use
  Company Number: US-ACTELION-A-NJ2013-78685

PATIENT
  Age: 82 Year
  Sex: Male

DRUGS (6)
  1. TRACLEER [Suspect]
     Active Substance: BOSENTAN
     Indication: PULMONARY ARTERIAL HYPERTENSION
     Dosage: UNK
     Route: 048
  2. NITROGLYCERIN. [Concomitant]
     Active Substance: NITROGLYCERIN
     Dosage: 0.5 MG, UNK
     Route: 060
  3. ESBRIET [Concomitant]
     Active Substance: PIRFENIDONE
  4. TRACLEER [Suspect]
     Active Substance: BOSENTAN
     Dosage: UNK
     Route: 048
  5. COUMADIN [Concomitant]
     Active Substance: WARFARIN SODIUM
  6. LASIX [Concomitant]
     Active Substance: FUROSEMIDE

REACTIONS (18)
  - Pulmonary oedema [Unknown]
  - Cardiac failure chronic [Unknown]
  - Chronic obstructive pulmonary disease [Recovered/Resolved]
  - Pleural effusion [Unknown]
  - Chronic kidney disease [Unknown]
  - Death [Fatal]
  - Pulmonary arterial hypertension [Unknown]
  - Cough [Recovered/Resolved]
  - Fluid retention [Unknown]
  - Atrial fibrillation [Recovering/Resolving]
  - Lung infection [Recovered/Resolved]
  - Dyspnoea [Unknown]
  - Pneumonia [Unknown]
  - Aspartate aminotransferase increased [Unknown]
  - Alanine aminotransferase increased [Unknown]
  - Dizziness [Unknown]
  - Sleep apnoea syndrome [Unknown]
  - Liver function test abnormal [Unknown]

NARRATIVE: CASE EVENT DATE: 20151129
